FAERS Safety Report 12542548 (Version 1)
Quarter: 2016Q3

REPORT INFORMATION
  Report Type: Spontaneous
  Country: JP (occurrence: JP)
  Receive Date: 20160709
  Receipt Date: 20160709
  Transmission Date: 20161109
  Serious: Yes (Other)
  Sender: FDA-Public Use
  Company Number: JP-CIPLA LTD.-2016JP08883

PATIENT

DRUGS (3)
  1. IRINOTECAN [Suspect]
     Active Substance: IRINOTECAN
     Indication: SMALL CELL LUNG CANCER
     Dosage: 50 MG/M2, 60 MIN ON DAYS 1 AND 8
     Route: 042
  2. AMRUBICIN [Suspect]
     Active Substance: AMRUBICIN
     Indication: SMALL CELL LUNG CANCER
     Dosage: 35 TO 40 MG/M2 (DOSE LEVEL UNSPECFIED) ON DAYS 1 TO 3
     Route: 042
  3. FILGRASTIM [Concomitant]
     Active Substance: FILGRASTIM
     Indication: PROPHYLAXIS
     Dosage: 75 MG/BODY/DAY, ADMINISTERED ON DAYS 4-7 AND 9-15
     Route: 065

REACTIONS (1)
  - Hyperkalaemia [Unknown]
